FAERS Safety Report 6140127-X (Version None)
Quarter: 2009Q2

REPORT INFORMATION
  Report Type: 
  Country: None (occurrence: None)
  Receive Date: 20090401
  Receipt Date: 20090330
  Transmission Date: 20091009
  Serious: Yes (Other)
  Sender: FDA-Public Use
  Company Number: CH-WYE-G03149909

PATIENT
  Sex: Female

DRUGS (7)
  1. TAZOBAC [Suspect]
     Indication: INFECTION
     Route: 042
     Dates: start: 20090208
  2. CLEXANE [Concomitant]
     Route: 058
  3. OLANZAPINE [Concomitant]
     Dosage: UNKNOWN
     Route: 048
  4. PARACETAMOL [Concomitant]
     Route: 042
  5. AMLODIPINE BESYLATE [Concomitant]
  6. LITHIOFOR [Concomitant]
     Route: 048
  7. PANTOZOL [Concomitant]

REACTIONS (1)
  - HYPERNATRAEMIA [None]
